FAERS Safety Report 9001586 (Version 1)
Quarter: 2013Q1

REPORT INFORMATION
  Report Type: Spontaneous
  Country: US (occurrence: US)
  Receive Date: 20130107
  Receipt Date: 20130107
  Transmission Date: 20140127
  Serious: Yes (Other)
  Sender: FDA-Public Use
  Company Number: US-BAYER-2013-000512

PATIENT
  Age: 70 Year
  Sex: Male
  Weight: 79.82 kg

DRUGS (2)
  1. ALEVE CAPLET/TABLET,MIDOL EXTENDED RELIEF CAPLET [Suspect]
     Indication: ANALGESIC THERAPY
     Dosage: UNK
     Route: 048
     Dates: start: 1995
  2. ASPIRIN [Concomitant]

REACTIONS (7)
  - Drug dependence [None]
  - Abdominal pain upper [Not Recovered/Not Resolved]
  - Incorrect drug administration duration [None]
  - Drug effect increased [None]
  - Inappropriate schedule of drug administration [None]
  - Drug effect decreased [None]
  - Drug effect increased [None]
